FAERS Safety Report 6582908-4 (Version None)
Quarter: 2010Q1

REPORT INFORMATION
  Report Type: 
  Country: None (occurrence: None)
  Receive Date: 20100216
  Receipt Date: 20100205
  Transmission Date: 20100710
  Serious: Yes (Other)
  Sender: FDA-Public Use
  Company Number: US-JNJFOC-20100100843

PATIENT
  Sex: Female
  Weight: 56.7 kg

DRUGS (4)
  1. REMICADE [Suspect]
     Indication: CROHN'S DISEASE
     Route: 042
  2. REMICADE [Suspect]
     Route: 042
  3. PREDNISONE [Concomitant]
     Indication: CROHN'S DISEASE
  4. ANTIBIOTICS [Concomitant]
     Indication: CROHN'S DISEASE

REACTIONS (3)
  - CROHN'S DISEASE [None]
  - DRUG EXPOSURE BEFORE PREGNANCY [None]
  - PREMATURE LABOUR [None]
